FAERS Safety Report 12671287 (Version 1)
Quarter: 2016Q3

REPORT INFORMATION
  Report Type: Spontaneous
  Country: US (occurrence: US)
  Receive Date: 20160822
  Receipt Date: 20160822
  Transmission Date: 20161109
  Serious: No
  Sender: FDA-Public Use
  Company Number: US-TEVA-634672USA

PATIENT
  Age: 64 Year
  Sex: Male
  Weight: 127.89 kg

DRUGS (10)
  1. WARFARIN [Concomitant]
     Active Substance: WARFARIN
  2. CRESTOR [Concomitant]
     Active Substance: ROSUVASTATIN CALCIUM
  3. ATENOLOL. [Concomitant]
     Active Substance: ATENOLOL
  4. GEMFIBROZIL. [Concomitant]
     Active Substance: GEMFIBROZIL
  5. FEXOFENADINE [Suspect]
     Active Substance: FEXOFENADINE\FEXOFENADINE HYDROCHLORIDE
     Indication: PROPHYLAXIS
     Dosage: 180 MILLIGRAM DAILY;
     Route: 048
     Dates: start: 20160126, end: 20160131
  6. MULTIVITAMINS, PLAIN [Concomitant]
     Active Substance: VITAMINS
  7. GABAPENTIN. [Concomitant]
     Active Substance: GABAPENTIN
  8. VITAMIN D [Concomitant]
     Active Substance: CHOLECALCIFEROL
  9. GLUCOSAMINE [Concomitant]
     Active Substance: GLUCOSAMINE
  10. MELOXICAM. [Concomitant]
     Active Substance: MELOXICAM

REACTIONS (3)
  - Off label use [Unknown]
  - Pruritus [Recovered/Resolved]
  - Rash [Recovering/Resolving]

NARRATIVE: CASE EVENT DATE: 20160126
